FAERS Safety Report 13910554 (Version 2)
Quarter: 2017Q3

REPORT INFORMATION
  Report Type: Spontaneous
  Country: US (occurrence: US)
  Receive Date: 20170828
  Receipt Date: 20170829
  Transmission Date: 20171127
  Serious: Yes (Other)
  Sender: FDA-Public Use
  Company Number: US-PFIZER INC-2017366535

PATIENT
  Age: 69 Year
  Sex: Female
  Weight: 84 kg

DRUGS (1)
  1. LYRICA [Suspect]
     Active Substance: PREGABALIN
     Indication: INTERVERTEBRAL DISC PROTRUSION
     Dosage: 50 MG, 1X/DAY, IN THE AFTERNOON
     Dates: start: 20170808, end: 201708

REACTIONS (9)
  - Psychomotor hyperactivity [Unknown]
  - Abdominal pain upper [Unknown]
  - Computerised tomogram abnormal [Unknown]
  - Blood pressure increased [Recovered/Resolved]
  - Insomnia [Unknown]
  - Heart rate increased [Recovered/Resolved]
  - Malaise [Unknown]
  - Pain [Unknown]
  - Headache [Unknown]

NARRATIVE: CASE EVENT DATE: 201708
